FAERS Safety Report 11272803 (Version 1)
Quarter: 2015Q2

REPORT INFORMATION
  Report Type: Spontaneous
  Country: US (occurrence: None)
  Receive Date: 20150625
  Receipt Date: 20150625
  Transmission Date: 20150821
  Serious: No
  Sender: FDA-Public Use
  Company Number: A-US2015-113034

PATIENT
  Age: 52 Year
  Sex: Female

DRUGS (10)
  1. OPSUMIT [Suspect]
     Active Substance: MACITENTAN
     Indication: PULMONARY ARTERIAL HYPERTENSION
     Route: 048
     Dates: start: 20140703
  2. CLARITIN (GLICLAZIDE) [Concomitant]
     Active Substance: GLICLAZIDE
  3. SPIRONOLACTONE. [Concomitant]
     Active Substance: SPIRONOLACTONE
  4. PRIMIDONE. [Concomitant]
     Active Substance: PRIMIDONE
  5. LEVOTHYROXINE [Concomitant]
     Active Substance: LEVOTHYROXINE
  6. OMEPRAZOLE. [Concomitant]
     Active Substance: OMEPRAZOLE
  7. DILTIAZEM [Concomitant]
     Active Substance: DILTIAZEM
  8. OXYGEN. [Concomitant]
     Active Substance: OXYGEN
  9. BUPROPION [Concomitant]
     Active Substance: BUPROPION
  10. IRON [Concomitant]
     Active Substance: IRON

REACTIONS (2)
  - Respiratory tract infection [None]
  - Bronchitis [None]

NARRATIVE: CASE EVENT DATE: 20150202
